FAERS Safety Report 6764944-8 (Version None)
Quarter: 2010Q2

REPORT INFORMATION
  Report Type: 
  Country: None (occurrence: None)
  Receive Date: 20100609
  Receipt Date: 20100511
  Transmission Date: 20101027
  Serious: Yes (Other)
  Sender: FDA-Public Use
  Company Number: 2010011590

PATIENT
  Age: 15 Month
  Sex: Female
  Weight: 10 kg

DRUGS (4)
  1. CHILDREN'S ZYRTEC ALLERGY [Suspect]
     Indication: RHINORRHOEA
     Dosage: ONE TEASPOON BEFORE BEDTIME, ORAL
     Route: 048
     Dates: start: 20100414, end: 20100502
  2. TYLENOL CHILDRENS (PARACETAMOL) [Suspect]
     Indication: DRUG USE FOR UNKNOWN INDICATION
  3. CHILDREN'S MOTRIN [Suspect]
     Indication: DRUG USE FOR UNKNOWN INDICATION
  4. MOTRIN [Suspect]
     Indication: DRUG USE FOR UNKNOWN INDICATION

REACTIONS (2)
  - ERYTHEMA MULTIFORME [None]
  - PRODUCT QUALITY ISSUE [None]
